FAERS Safety Report 9092157 (Version 1)
Quarter: 2013Q1

REPORT INFORMATION
  Report Type: Spontaneous
  Country: GB (occurrence: GB)
  Receive Date: 20130201
  Receipt Date: 20130201
  Transmission Date: 20140127
  Serious: Yes (Disabling)
  Sender: FDA-Public Use
  Company Number: GB-SANOFI-AVENTIS-2012SA089466

PATIENT
  Age: 79 Year
  Sex: Female

DRUGS (4)
  1. MULTAQ [Suspect]
     Indication: ATRIAL FIBRILLATION
     Route: 048
     Dates: start: 20120502
  2. CANDESARTAN [Concomitant]
     Indication: HYPERTENSION
     Dosage: START DATE: PRIOR TO 2011.
     Route: 048
  3. LANSOPRAZOLE [Concomitant]
     Indication: DYSPEPSIA
     Dosage: START DATE: PRIOR TO 2011.
     Route: 048
  4. NITRAZEPAM [Concomitant]
     Indication: SLEEP DISORDER
     Dosage: START DATE: PRIOR TO 2011.
     Route: 065

REACTIONS (1)
  - Axonal neuropathy [Not Recovered/Not Resolved]
